FAERS Safety Report 6676439-0 (Version None)
Quarter: 2010Q2

REPORT INFORMATION
  Report Type: 
  Country: None (occurrence: None)
  Receive Date: 20100412
  Receipt Date: 20100331
  Transmission Date: 20101027
  Serious: Yes (Hospitalization, Other)
  Sender: FDA-Public Use
  Company Number: PHHY2010US20998

PATIENT
  Age: 24 Year
  Sex: Female

DRUGS (3)
  1. METHYLPHENIDATE [Suspect]
     Dosage: UNK
  2. OXYCODONE [Concomitant]
  3. MARIJUANA [Concomitant]
     Dosage: UNK

REACTIONS (28)
  - BLOOD ALKALINE PHOSPHATASE INCREASED [None]
  - BLOOD PRESSURE DECREASED [None]
  - CAESAREAN SECTION [None]
  - CARDIAC VALVE VEGETATION [None]
  - CHILLS [None]
  - COUGH [None]
  - DIARRHOEA [None]
  - DISORIENTATION [None]
  - DRUG ABUSE [None]
  - DRUG EXPOSURE DURING PREGNANCY [None]
  - DRUG SCREEN POSITIVE [None]
  - DYSPNOEA [None]
  - ENDOCARDITIS STAPHYLOCOCCAL [None]
  - GENERAL PHYSICAL HEALTH DETERIORATION [None]
  - HAEMOGLOBIN DECREASED [None]
  - HEART RATE INCREASED [None]
  - INFARCTION [None]
  - INFLUENZA LIKE ILLNESS [None]
  - MALAISE [None]
  - NORMAL NEWBORN [None]
  - PLATELET COUNT DECREASED [None]
  - PYREXIA [None]
  - RASH [None]
  - RESPIRATORY RATE INCREASED [None]
  - SEPTIC EMBOLUS [None]
  - SWOLLEN TONGUE [None]
  - VOMITING [None]
  - WHITE BLOOD CELL COUNT DECREASED [None]
